FAERS Safety Report 23964505 (Version 3)
Quarter: 2024Q3

REPORT INFORMATION
  Report Type: Report from Study
  Country: US (occurrence: US)
  Receive Date: 20240612
  Receipt Date: 20240701
  Transmission Date: 20241016
  Serious: Yes (Hospitalization, Other)
  Sender: ABBVIE
  Company Number: US-ABBVIE-5791984

PATIENT
  Age: 59 Year
  Sex: Female
  Weight: 146 kg

DRUGS (4)
  1. SKYRIZI [Suspect]
     Active Substance: RISANKIZUMAB-RZAA
     Indication: Psoriasis
     Dosage: FORM STRENGTH: 150 MG
     Route: 058
     Dates: start: 20210120, end: 2024
  2. SKYRIZI [Suspect]
     Active Substance: RISANKIZUMAB-RZAA
     Dosage: FORM STRENGTH: 150 MG
     Route: 058
     Dates: start: 20240330
  3. TYLENOL [Concomitant]
     Active Substance: ACETAMINOPHEN
     Indication: Pain
  4. ZELLETA [Concomitant]
     Indication: Product used for unknown indication

REACTIONS (4)
  - Uterine cancer [Recovered/Resolved]
  - Pulmonary embolism [Recovered/Resolved]
  - Ureteral wall thickening [Recovered/Resolved]
  - Endometrial hypertrophy [Recovered/Resolved]

NARRATIVE: CASE EVENT DATE: 20240101
